FAERS Safety Report 5416562-1 (Version None)
Quarter: 2007Q3

REPORT INFORMATION
  Report Type: 
  Country: None (occurrence: None)
  Receive Date: 20070816
  Receipt Date: 20070808
  Transmission Date: 20080115
  Serious: Yes (Other)
  Sender: FDA-Public Use
  Company Number: HQWYE470809AUG07

PATIENT
  Sex: Female

DRUGS (2)
  1. PRIMATENE MIST [Suspect]
     Dosage: UNKNOWN
     Route: 055
  2. ALBUTEROL [Concomitant]
     Dosage: UNKNOWN
     Route: 065

REACTIONS (4)
  - DRUG DEPENDENCE [None]
  - DRUG WITHDRAWAL SYNDROME [None]
  - HYPERVENTILATION [None]
  - PANIC REACTION [None]
